FAERS Safety Report 12830638 (Version 2)
Quarter: 2016Q4

REPORT INFORMATION
  Report Type: Spontaneous
  Country: US (occurrence: US)
  Receive Date: 20161007
  Receipt Date: 20161011
  Transmission Date: 20170207
  Serious: No
  Sender: FDA-Public Use
  Company Number: ALCN2016US006858

PATIENT
  Sex: Female

DRUGS (1)
  1. TEARS NATURALE FREE [Suspect]
     Active Substance: DEXTRAN 70\HYPROMELLOSE 2910 (4000 MPA.S)
     Indication: PRODUCT USED FOR UNKNOWN INDICATION
     Dosage: UNK
     Route: 047

REACTIONS (2)
  - Superficial injury of eye [Recovered/Resolved]
  - Product quality issue [Unknown]
